FAERS Safety Report 6581762-4 (Version None)
Quarter: 2010Q1

REPORT INFORMATION
  Report Type: 
  Country: None (occurrence: None)
  Receive Date: 20100215
  Receipt Date: 20100204
  Transmission Date: 20100710
  Serious: Yes (Other)
  Sender: FDA-Public Use
  Company Number: PHEH2010US01751

PATIENT

DRUGS (2)
  1. CLOZARIL [Suspect]
     Dosage: UNK
  2. CLOZAPINE [Suspect]

REACTIONS (2)
  - NON-HODGKIN'S LYMPHOMA [None]
  - WHITE BLOOD CELL COUNT DECREASED [None]
